FAERS Safety Report 21799756 (Version 4)
Quarter: 2023Q4

REPORT INFORMATION
  Report Type: Spontaneous
  Country: US (occurrence: US)
  Receive Date: 20221230
  Receipt Date: 20231115
  Transmission Date: 20240110
  Serious: Yes (Other)
  Sender: FDA-Public Use
  Company Number: US-PFIZER INC-PV202200133447

PATIENT
  Age: 65 Year
  Sex: Female

DRUGS (1)
  1. INLYTA [Suspect]
     Active Substance: AXITINIB
     Dosage: 5 MG
     Dates: end: 20231025

REACTIONS (5)
  - Haemorrhage urinary tract [Recovered/Resolved]
  - Productive cough [Unknown]
  - Fatigue [Unknown]
  - Diarrhoea [Unknown]
  - Thyroid disorder [Not Recovered/Not Resolved]
